FAERS Safety Report 6992872-1 (Version None)
Quarter: 2010Q3

REPORT INFORMATION
  Report Type: 
  Country: None (occurrence: None)
  Receive Date: 20100917
  Receipt Date: 20100908
  Transmission Date: 20110219
  Serious: Yes (Other)
  Sender: FDA-Public Use
  Company Number: B0674659A

PATIENT
  Sex: Male
  Weight: 89 kg

DRUGS (1)
  1. DUTASTERIDE [Suspect]
     Indication: PROSTATE CANCER
     Dosage: .5MG PER DAY
     Route: 048
     Dates: start: 20040903, end: 20080901

REACTIONS (2)
  - PROSTATE CANCER [None]
  - TESTICULAR PAIN [None]
